FAERS Safety Report 24271189 (Version 1)
Quarter: 2024Q3

REPORT INFORMATION
  Report Type: Spontaneous
  Country: US (occurrence: US)
  Receive Date: 20240831
  Receipt Date: 20240831
  Transmission Date: 20241017
  Serious: No
  Sender: AMGEN
  Company Number: US-AMGEN-USASP2024172435

PATIENT
  Age: 58 Year
  Sex: Female

DRUGS (2)
  1. NPLATE [Suspect]
     Active Substance: ROMIPLOSTIM
     Indication: Thrombocytopenia
     Dosage: 170 MICROGRAM, QWK
     Route: 065
     Dates: end: 202407
  2. NPLATE [Suspect]
     Active Substance: ROMIPLOSTIM
     Dosage: 170 MICROGRAM, QWK
     Route: 065
     Dates: start: 20240730

REACTIONS (1)
  - Malaise [Unknown]

NARRATIVE: CASE EVENT DATE: 20240726
